FAERS Safety Report 5707256-3 (Version None)
Quarter: 2008Q2

REPORT INFORMATION
  Report Type: 
  Country: None (occurrence: None)
  Receive Date: 20080414
  Receipt Date: 20080414
  Transmission Date: 20081010
  Serious: Yes (Other)
  Sender: FDA-Public Use
  Company Number: None

PATIENT
  Sex: Female
  Weight: 63.5036 kg

DRUGS (1)
  1. DILANTIN [Suspect]
     Indication: EPILEPSY
     Dosage: 100 MG TID PO
     Route: 048
     Dates: start: 20080124, end: 20080411

REACTIONS (9)
  - ANTICONVULSANT DRUG LEVEL ABOVE THERAPEUTIC [None]
  - DISORIENTATION [None]
  - DISTURBANCE IN ATTENTION [None]
  - IMPAIRED DRIVING ABILITY [None]
  - PARAESTHESIA [None]
  - PHARMACEUTICAL PRODUCT COMPLAINT [None]
  - VESTIBULAR DISORDER [None]
  - VISION BLURRED [None]
  - VISUAL DISTURBANCE [None]
